FAERS Safety Report 18409794 (Version 1)
Quarter: 2020Q4

REPORT INFORMATION
  Report Type: Spontaneous
  Country: US (occurrence: US)
  Receive Date: 20201021
  Receipt Date: 20201021
  Transmission Date: 20210114
  Serious: No
  Sender: FDA-Public Use
  Company Number: None

PATIENT
  Age: 43 Year
  Sex: Female
  Weight: 106.59 kg

DRUGS (2)
  1. BUPROPION 150MG, 300MG [Suspect]
     Active Substance: BUPROPION
     Route: 048
     Dates: start: 2014, end: 2014
  2. BUPROPION 150MG, 300MG [Suspect]
     Active Substance: BUPROPION
     Indication: ANXIETY
     Route: 048
     Dates: start: 2013, end: 2013

REACTIONS (7)
  - Product substitution issue [None]
  - Panic attack [None]
  - Cognitive disorder [None]
  - Anxiety [None]
  - Weight increased [None]
  - Depressed level of consciousness [None]
  - Agitation [None]

NARRATIVE: CASE EVENT DATE: 2013
